FAERS Safety Report 20442183 (Version 5)
Quarter: 2022Q3

REPORT INFORMATION
  Report Type: Spontaneous
  Country: JP (occurrence: JP)
  Receive Date: 20220208
  Receipt Date: 20220812
  Transmission Date: 20221026
  Serious: No
  Sender: FDA-Public Use
  Company Number: JP-GLAXOSMITHKLINE-JP2022JPN018359

PATIENT

DRUGS (15)
  1. SOTROVIMAB [Suspect]
     Active Substance: SOTROVIMAB
     Indication: COVID-19
     Dosage: 500 MG/DAY
     Route: 041
     Dates: start: 20220129, end: 20220129
  2. NOVORAPID [Suspect]
     Active Substance: INSULIN ASPART
     Indication: Type 1 diabetes mellitus
     Dosage: 20.7 UNITS/DAY
     Route: 058
     Dates: end: 20211228
  3. INSULIN ASPART RECOMBINANT [Suspect]
     Active Substance: INSULIN ASPART
     Indication: Type 1 diabetes mellitus
     Dosage: 21.3 UNITS/DAY
     Route: 058
     Dates: start: 20211229
  4. BAQSIMI [Suspect]
     Active Substance: GLUCAGON
     Indication: Hypoglycaemia
     Dosage: 3 MG/DAY
     Route: 045
     Dates: start: 20211004, end: 20211004
  5. MAGNESIUM OXIDE [Suspect]
     Active Substance: MAGNESIUM OXIDE
     Indication: Constipation
     Dosage: 990 MG/DAY
     Route: 048
     Dates: start: 20211007, end: 20211013
  6. MAGNESIUM OXIDE [Suspect]
     Active Substance: MAGNESIUM OXIDE
     Dosage: 990 MG
     Route: 048
     Dates: start: 20211021, end: 20211103
  7. MAGNESIUM OXIDE [Suspect]
     Active Substance: MAGNESIUM OXIDE
     Dosage: 990 MG
     Route: 048
     Dates: start: 20211130, end: 20211227
  8. MAGNESIUM OXIDE [Suspect]
     Active Substance: MAGNESIUM OXIDE
     Dosage: 990 MG
     Route: 048
     Dates: start: 20220130, end: 20220202
  9. MAGNESIUM OXIDE [Suspect]
     Active Substance: MAGNESIUM OXIDE
     Dosage: 990 MG
     Route: 048
     Dates: start: 20220206, end: 20220211
  10. CEPHALEXIN [Suspect]
     Active Substance: CEPHALEXIN
     Indication: Induced labour
     Dosage: 1000 MG/DAY
     Route: 048
     Dates: start: 20220404, end: 20220404
  11. CEPHALEXIN [Suspect]
     Active Substance: CEPHALEXIN
     Indication: Streptococcus test positive
     Dosage: 1000 MG
     Route: 048
     Dates: start: 20220406, end: 20220406
  12. CEPHALEXIN [Suspect]
     Active Substance: CEPHALEXIN
     Dosage: 1000 MG
     Route: 048
     Dates: start: 20220411, end: 20220411
  13. PROSTIN E2 [Suspect]
     Active Substance: DINOPROSTONE
     Indication: Induced labour
     Dosage: 2 MG
     Route: 048
     Dates: start: 20220404, end: 20220404
  14. PROSTIN E2 [Suspect]
     Active Substance: DINOPROSTONE
     Dosage: 2.5 MG/DAY
     Route: 048
     Dates: start: 20220406, end: 20220406
  15. PROSTIN E2 [Suspect]
     Active Substance: DINOPROSTONE
     Dosage: 2.5 MG/DAY
     Route: 048
     Dates: start: 20220411, end: 20220411

REACTIONS (2)
  - Exposure during pregnancy [Unknown]
  - Live birth [Unknown]
